FAERS Safety Report 23207475 (Version 1)
Quarter: 2023Q4

REPORT INFORMATION
  Report Type: Spontaneous
  Country: US (occurrence: US)
  Receive Date: 20231120
  Receipt Date: 20231120
  Transmission Date: 20240110
  Serious: No
  Sender: FDA-Public Use
  Company Number: US-AMGEN-USASL2023205824

PATIENT
  Age: 72 Year
  Sex: Female

DRUGS (2)
  1. MVASI [Suspect]
     Active Substance: BEVACIZUMAB-AWWB
     Indication: Ovarian cancer
     Dosage: 600 MILLIGRAM (ONE 400 MG VIAL AND TWO 100 MG VIALS)
     Route: 065
  2. MVASI [Suspect]
     Active Substance: BEVACIZUMAB-AWWB
     Dosage: 600 MILLIGRAM (ONE 400 MG VIAL AND TWO 100 MG VIALS)
     Route: 065

REACTIONS (1)
  - Surgery [Unknown]
